FAERS Safety Report 8228090-9 (Version None)
Quarter: 2012Q1

REPORT INFORMATION
  Report Type: 
  Country: None (occurrence: None)
  Receive Date: 20120322
  Receipt Date: 20111227
  Transmission Date: 20120608
  Serious: No
  Sender: FDA-Public Use
  Company Number: US-BRISTOL-MYERS SQUIBB COMPANY-16320301

PATIENT
  Age: 76 Year
  Sex: Female

DRUGS (14)
  1. LISINOPRIL [Concomitant]
  2. METOPROLOL SUCCINATE [Concomitant]
  3. VERAMYST [Concomitant]
  4. OMEPRAZOLE [Concomitant]
  5. VITAMIN TAB [Concomitant]
  6. BUDESONIDE [Concomitant]
  7. ERBITUX [Suspect]
     Dosage: THERAPY DURATION:ABOUT A MONTH
     Route: 042
  8. FUROSEMIDE [Concomitant]
  9. PLAVIX [Concomitant]
  10. AMLODIPINE [Concomitant]
  11. ISOSORBIDE MONONITRATE [Concomitant]
  12. SINGULAIR [Concomitant]
  13. SIMVASTATIN [Concomitant]
  14. ASPIRIN [Concomitant]

REACTIONS (3)
  - PRURITUS [None]
  - RASH [None]
  - STOMATITIS [None]
